FAERS Safety Report 24159067 (Version 1)
Quarter: 2024Q3

REPORT INFORMATION
  Report Type: Report from Study
  Country: CA (occurrence: CA)
  Receive Date: 20240731
  Receipt Date: 20240731
  Transmission Date: 20241017
  Serious: Yes (Other)
  Sender: COVIS PHARMA
  Company Number: CA-AstraZeneca-2019SF73454

PATIENT
  Age: 58 Year
  Sex: Male

DRUGS (10)
  1. OMNARIS [Suspect]
     Active Substance: CICLESONIDE
     Route: 055
  2. RHINOCORT [Suspect]
     Active Substance: BUDESONIDE
     Route: 045
  3. ADVAIR HFA [Suspect]
     Active Substance: FLUTICASONE PROPIONATE\SALMETEROL XINAFOATE
     Indication: Asthma
     Route: 055
  4. GLYCOPYRROLATE [Suspect]
     Active Substance: GLYCOPYRROLATE
     Route: 065
  5. MEPOLIZUMAB [Suspect]
     Active Substance: MEPOLIZUMAB
     Indication: Asthma
     Route: 042
  6. PREDNISONE [Suspect]
     Active Substance: PREDNISONE
     Route: 065
  7. VENTOLIN [Suspect]
     Active Substance: ALBUTEROL SULFATE
     Indication: Asthma
     Route: 065
  8. CIPRALEX [Concomitant]
     Active Substance: ESCITALOPRAM OXALATE
     Route: 065
  9. RANITIDINE [Concomitant]
     Active Substance: RANITIDINE
     Route: 065
  10. ROSUVASTATIN CALCIUM [Concomitant]
     Active Substance: ROSUVASTATIN CALCIUM
     Route: 065

REACTIONS (9)
  - Full blood count abnormal [Unknown]
  - Bronchiectasis [Unknown]
  - Drug dependence [Unknown]
  - Lung hyperinflation [Unknown]
  - Lung infiltration [Unknown]
  - Pleural thickening [Unknown]
  - Respiratory tract infection [Unknown]
  - Secretion discharge [Unknown]
  - Therapeutic product effect incomplete [Unknown]
